FAERS Safety Report 21273656 (Version 1)
Quarter: 2022Q3

REPORT INFORMATION
  Report Type: Report from Study
  Country: DE (occurrence: None)
  Receive Date: 20220831
  Receipt Date: 20220831
  Transmission Date: 20221026
  Serious: Yes (Hospitalization)
  Sender: FDA-Public Use
  Company Number: DE-ROCHE-3167419

PATIENT
  Age: 58 Year
  Sex: Female
  Weight: 86 kg

DRUGS (10)
  1. ATEZOLIZUMAB [Suspect]
     Active Substance: ATEZOLIZUMAB
     Indication: Triple negative breast cancer
     Dosage: MOST RECENT DOSE 08/JUL/2022
     Route: 042
     Dates: start: 20220207
  2. PACLITAXEL [Suspect]
     Active Substance: PACLITAXEL
     Indication: Triple negative breast cancer
     Dosage: MOST RECENT DOSE 26/APR/2022
     Route: 042
     Dates: start: 20220207
  3. CARBOPLATIN [Suspect]
     Active Substance: CARBOPLATIN
     Indication: Triple negative breast cancer
     Dosage: MOST RECENT DOSE 26/APR/2022
     Route: 042
     Dates: start: 20220207
  4. EPIRUBICIN [Suspect]
     Active Substance: EPIRUBICIN
     Indication: Triple negative breast cancer
     Dosage: MOST RECENT DOSE 08/JUL/2022
     Route: 042
     Dates: start: 20220506
  5. CYCLOPHOSPHAMIDE [Suspect]
     Active Substance: CYCLOPHOSPHAMIDE
     Indication: Triple negative breast cancer
     Dosage: MOST RECENT DOSE 08/JUL/2022
     Route: 042
     Dates: start: 20220506
  6. HUMAN RED BLOOD CELL [Concomitant]
     Active Substance: HUMAN RED BLOOD CELL
     Dosage: 2 PACKS ONCE
     Dates: start: 20220503, end: 20220503
  7. HUMAN RED BLOOD CELL [Concomitant]
     Active Substance: HUMAN RED BLOOD CELL
     Dosage: 2 PACKS ONCE
     Dates: start: 20220725, end: 20220725
  8. HUMAN RED BLOOD CELL [Concomitant]
     Active Substance: HUMAN RED BLOOD CELL
     Dosage: 2 PACKS ONCE
     Dates: start: 20220516, end: 20220516
  9. BISOPROLOL [Concomitant]
     Active Substance: BISOPROLOL
  10. KALINOR [Concomitant]
     Dosage: 1 TABLET ONCE DAILY
     Dates: start: 20220725

REACTIONS (1)
  - General physical health deterioration [Not Recovered/Not Resolved]

NARRATIVE: CASE EVENT DATE: 20220726
